FAERS Safety Report 6653519-7 (Version None)
Quarter: 2010Q1

REPORT INFORMATION
  Report Type: 
  Country: None (occurrence: None)
  Receive Date: 20100326
  Receipt Date: 20100319
  Transmission Date: 20100710
  Serious: Yes (Other)
  Sender: FDA-Public Use
  Company Number: DE-AMGEN-QUU396510

PATIENT
  Sex: Female
  Weight: 83 kg

DRUGS (4)
  1. NPLATE [Suspect]
     Indication: IDIOPATHIC THROMBOCYTOPENIC PURPURA
     Route: 058
     Dates: start: 20090729
  2. PANTOPRAZOLE SODIUM [Concomitant]
     Route: 048
  3. CIPRAMIL [Concomitant]
     Route: 048
  4. DELIX [Concomitant]
     Route: 048

REACTIONS (4)
  - MUCOSAL HAEMORRHAGE [None]
  - PLATELET COUNT DECREASED [None]
  - SKIN HAEMORRHAGE [None]
  - THERAPEUTIC RESPONSE DECREASED [None]
